FAERS Safety Report 6615902-5 (Version None)
Quarter: 2010Q1

REPORT INFORMATION
  Report Type: 
  Country: None (occurrence: None)
  Receive Date: 20100305
  Receipt Date: 20100301
  Transmission Date: 20100710
  Serious: Yes (Hospitalization)
  Sender: FDA-Public Use
  Company Number: US-ELI_LILLY_AND_COMPANY-US201003000518

PATIENT
  Sex: Female

DRUGS (4)
  1. HUMULIN 70/30 [Suspect]
     Dosage: 30 U, EACH MORNING
  2. HUMULIN 70/30 [Suspect]
     Dosage: 20 U, EACH EVENING
  3. HUMULIN 70/30 [Suspect]
     Dosage: 6 U, DAILY (1/D)
     Dates: start: 20100101
  4. LANTUS [Concomitant]

REACTIONS (3)
  - CEREBROVASCULAR ACCIDENT [None]
  - GAIT DISTURBANCE [None]
  - MYOCARDIAL INFARCTION [None]
